FAERS Safety Report 5115662-3 (Version None)
Quarter: 2006Q3

REPORT INFORMATION
  Report Type: 
  Country: None (occurrence: None)
  Receive Date: 20060927
  Receipt Date: 20060913
  Transmission Date: 20061208
  Serious: Yes (Other)
  Sender: FDA-Public Use
  Company Number: AU-PURDUE-USA_2006_0025218

PATIENT
  Age: 54 Year
  Sex: Female

DRUGS (6)
  1. MORPHINE SULFATE [Suspect]
     Indication: BREAKTHROUGH PAIN
     Dosage: 2.5 MG, SEE TEXT
     Route: 042
  2. TRAMADOL HCL [Suspect]
     Indication: ANALGESIC THERAPY
     Dosage: 50 MG, TID
     Route: 042
  3. AMITRIPTYLINE HCL [Suspect]
     Indication: ANALGESIC THERAPY
     Dosage: 25 MG, HS
     Route: 048
  4. SULFADIAZINE SILVER [Concomitant]
     Dosage: UNK, DAILY
     Route: 061
  5. OXYGEN [Concomitant]
     Dosage: UNK, SEE TEXT
     Route: 061
  6. CHARCOAL [Concomitant]
     Route: 061

REACTIONS (9)
  - ACTIVITIES OF DAILY LIVING IMPAIRED [None]
  - AGITATION [None]
  - DEPRESSED LEVEL OF CONSCIOUSNESS [None]
  - DRUG INEFFECTIVE [None]
  - DRUG TOXICITY [None]
  - GENERAL PHYSICAL HEALTH DETERIORATION [None]
  - MYOCLONUS [None]
  - STAPHYLOCOCCAL SEPSIS [None]
  - VASCULAR ACCESS COMPLICATION [None]
